FAERS Safety Report 15089754 (Version 1)
Quarter: 2018Q2

REPORT INFORMATION
  Report Type: Spontaneous
  Country: US (occurrence: US)
  Receive Date: 20180629
  Receipt Date: 20180629
  Transmission Date: 20180711
  Serious: Yes (Other)
  Sender: FDA-Public Use
  Company Number: US-TEVA-2018-US-916422

PATIENT
  Sex: Female

DRUGS (1)
  1. COPAXONE [Suspect]
     Active Substance: GLATIRAMER ACETATE
     Route: 065

REACTIONS (7)
  - Injection site mass [Unknown]
  - Heart rate increased [Unknown]
  - Anxiety [Unknown]
  - Injection site pain [Unknown]
  - Throat tightness [Unknown]
  - Oligomenorrhoea [Unknown]
  - Nausea [Unknown]
